FAERS Safety Report 9132792 (Version 1)
Quarter: 2013Q1

REPORT INFORMATION
  Report Type: Spontaneous
  Country: FI (occurrence: FI)
  Receive Date: 20130301
  Receipt Date: 20130301
  Transmission Date: 20140127
  Serious: Yes (Other)
  Sender: FDA-Public Use
  Company Number: FI-ROCHE-1196071

PATIENT
  Age: 75 Year
  Sex: Male

DRUGS (1)
  1. MABTHERA [Suspect]
     Indication: RHEUMATOID ARTHRITIS
     Route: 065
     Dates: start: 200604, end: 201112

REACTIONS (4)
  - Hemiparesis [Recovered/Resolved]
  - Infection susceptibility increased [Unknown]
  - Infection [Unknown]
  - Pyrexia [Unknown]
